FAERS Safety Report 8791801 (Version 2)
Quarter: 2012Q4

REPORT INFORMATION
  Report Type: 
  Country: JP (occurrence: JP)
  Receive Date: 20120918
  Receipt Date: 20121008
  Transmission Date: 20130627
  Serious: Yes (Other)
  Sender: FDA-Public Use
  Company Number: JP-PFIZER INC-2012096746

PATIENT
  Age: 62 Year
  Sex: Male

DRUGS (1)
  1. SUTENT [Suspect]
     Indication: RENAL CANCER
     Dosage: 37.5 mg, 1x/day
     Route: 048
     Dates: start: 201111, end: 20120704

REACTIONS (4)
  - Pericardial effusion [Recovered/Resolved]
  - Blood creatine phosphokinase increased [Recovered/Resolved]
  - Ejection fraction decreased [Unknown]
  - Eyelid oedema [Recovered/Resolved]
